FAERS Safety Report 19242782 (Version 3)
Quarter: 2021Q2

REPORT INFORMATION
  Report Type: Report from Study
  Country: None (occurrence: CA)
  Receive Date: 20210510
  Receipt Date: 20210621
  Transmission Date: 20210717
  Serious: Yes (Hospitalization, Other)
  Sender: FDA-Public Use
  Company Number: CA-ABBVIE-21K-028-3897805-00

PATIENT
  Sex: Male

DRUGS (1)
  1. HUMIRA [Suspect]
     Active Substance: ADALIMUMAB
     Indication: CROHN^S DISEASE
     Route: 058
     Dates: start: 20161215

REACTIONS (5)
  - Catheter placement [Unknown]
  - Intestinal obstruction [Not Recovered/Not Resolved]
  - Chromaturia [Unknown]
  - Blood creatinine increased [Recovered/Resolved]
  - Umbilical hernia [Unknown]
